FAERS Safety Report 14085419 (Version 1)
Quarter: 2017Q4

REPORT INFORMATION
  Report Type: Spontaneous
  Country: US (occurrence: US)
  Receive Date: 20171013
  Receipt Date: 20171013
  Transmission Date: 20180321
  Serious: Yes (Other)
  Sender: FDA-Public Use
  Company Number: US-VISTAPHARM, INC.-VER201710-000861

PATIENT
  Age: 62 Year
  Sex: Male

DRUGS (1)
  1. MORPHINE [Suspect]
     Active Substance: MORPHINE
     Indication: ABDOMINAL PAIN
     Dosage: EXTENDED-RELEASE
     Route: 048

REACTIONS (3)
  - Neurotoxicity [Unknown]
  - Nausea [Unknown]
  - Vomiting [Unknown]
